FAERS Safety Report 6240376-6 (Version None)
Quarter: 2009Q2

REPORT INFORMATION
  Report Type: 
  Country: None (occurrence: None)
  Receive Date: 20090623
  Receipt Date: 20080604
  Transmission Date: 20091009
  Serious: No
  Sender: FDA-Public Use
  Company Number: US-ASTRAZENECA-2008UW11267

PATIENT
  Age: 73 Year
  Sex: Female
  Weight: 117.9 kg

DRUGS (5)
  1. PULMICORT RESPULES [Suspect]
     Indication: BRONCHOSPASM
     Route: 055
     Dates: start: 20080523, end: 20080525
  2. ALBUTEROL NEBULIZATION [Concomitant]
  3. PROVENTIL-HFA [Concomitant]
     Route: 055
  4. ASPIRIN [Concomitant]
  5. IBUPROFEN [Concomitant]

REACTIONS (3)
  - ABDOMINAL PAIN UPPER [None]
  - DEPRESSION [None]
  - ERUCTATION [None]
